FAERS Safety Report 25094613 (Version 1)
Quarter: 2025Q1

REPORT INFORMATION
  Report Type: Report from Study
  Country: DE (occurrence: DE)
  Receive Date: 20250319
  Receipt Date: 20250319
  Transmission Date: 20250409
  Serious: Yes (Hospitalization, Other)
  Sender: EMD SERONO INC
  Company Number: DE-Merck Healthcare KGaA-2025013119

PATIENT
  Sex: Male

DRUGS (2)
  1. REBIF [Suspect]
     Active Substance: INTERFERON BETA-1A
     Indication: Multiple sclerosis
     Dates: start: 2011
  2. REBIF [Suspect]
     Active Substance: INTERFERON BETA-1A

REACTIONS (4)
  - Abnormal loss of weight [Unknown]
  - Injection site infection [Unknown]
  - Injection site inflammation [Unknown]
  - Product administered at inappropriate site [Unknown]
